FAERS Safety Report 6613976-9 (Version None)
Quarter: 2010Q1

REPORT INFORMATION
  Report Type: 
  Country: None (occurrence: None)
  Receive Date: 20100225
  Receipt Date: 20100218
  Transmission Date: 20100710
  Serious: Yes (Other)
  Sender: FDA-Public Use
  Company Number: 007256

PATIENT
  Age: 77 Year
  Sex: Female

DRUGS (3)
  1. KEPPRA [Suspect]
     Indication: CONVULSION
     Dosage: (250 MG BID ORAL), (500 MG BID ORAL)
     Route: 048
     Dates: start: 20091201
  2. KEPPRA [Suspect]
     Indication: CONVULSION
     Dosage: (250 MG BID ORAL), (500 MG BID ORAL)
     Route: 048
     Dates: start: 20100101
  3. PARACETAMOL [Concomitant]

REACTIONS (7)
  - APATHY [None]
  - BLINDNESS [None]
  - DECREASED APPETITE [None]
  - GASTROINTESTINAL MOTILITY DISORDER [None]
  - INSOMNIA [None]
  - MICTURITION DISORDER [None]
  - URINARY RETENTION [None]
